FAERS Safety Report 18370745 (Version 1)
Quarter: 2020Q4

REPORT INFORMATION
  Report Type: Other
  Country: SE (occurrence: SE)
  Receive Date: 20201012
  Receipt Date: 20201012
  Transmission Date: 20210114
  Serious: Yes (Hospitalization, Other)
  Sender: FDA-Public Use
  Company Number: SE-ROCHE-2691608

PATIENT

DRUGS (1)
  1. RITUXIMAB. [Suspect]
     Active Substance: RITUXIMAB
     Indication: MULTIPLE SCLEROSIS
     Route: 041

REACTIONS (24)
  - Pyelonephritis [Unknown]
  - Acute febrile neutrophilic dermatosis [Unknown]
  - Herpes simplex [Unknown]
  - Bronchitis [Unknown]
  - Erysipelas [Unknown]
  - Gastroenteritis [Unknown]
  - Abscess intestinal [Unknown]
  - Herpes zoster [Unknown]
  - Intentional product use issue [Unknown]
  - Pneumonia [Unknown]
  - Appendicitis [Unknown]
  - Enteritis [Unknown]
  - Pyoderma gangrenosum [Unknown]
  - Off label use [Unknown]
  - Cervix carcinoma [Unknown]
  - Sepsis [Unknown]
  - Cholecystitis [Unknown]
  - Escherichia sepsis [Unknown]
  - Basal cell carcinoma [Unknown]
  - Wound infection [Unknown]
  - Tonsillitis [Unknown]
  - Sinusitis [Unknown]
  - Interstitial lung disease [Unknown]
  - Ear infection [Unknown]
